FAERS Safety Report 25205330 (Version 1)
Quarter: 2025Q2

REPORT INFORMATION
  Report Type: Report from Study
  Country: CA (occurrence: CA)
  Receive Date: 20250417
  Receipt Date: 20250417
  Transmission Date: 20250717
  Serious: Yes (Hospitalization)
  Sender: ABBVIE
  Company Number: CA-ABBVIE-6232949

PATIENT
  Sex: Male

DRUGS (1)
  1. LUPRON [Suspect]
     Active Substance: LEUPROLIDE ACETATE
     Indication: Prostate cancer
     Dosage: DOSE STRENGTH: 22.5 MG
     Route: 030
     Dates: start: 20231120

REACTIONS (2)
  - Urinary tract infection [Recovering/Resolving]
  - Fatigue [Recovering/Resolving]
